FAERS Safety Report 6581736-3 (Version None)
Quarter: 2010Q1

REPORT INFORMATION
  Report Type: 
  Country: None (occurrence: None)
  Receive Date: 20100215
  Receipt Date: 20100202
  Transmission Date: 20100710
  Serious: Yes (Other)
  Sender: FDA-Public Use
  Company Number: PHHY2010DE07235

PATIENT
  Sex: Female

DRUGS (2)
  1. PROVAS [Suspect]
     Indication: HYPERTENSION
     Dosage: 1 DF (160 MG), QD
     Dates: start: 20081101
  2. BELOC ZOK [Concomitant]
     Indication: HYPERTENSION
     Dosage: 1 DF, QD
     Dates: start: 20081101

REACTIONS (3)
  - APNOEA [None]
  - CIRCULATORY COLLAPSE [None]
  - LOSS OF CONSCIOUSNESS [None]
